FAERS Safety Report 6986706-9 (Version None)
Quarter: 2010Q3

REPORT INFORMATION
  Report Type: 
  Country: None (occurrence: None)
  Receive Date: 20100915
  Receipt Date: 20090724
  Transmission Date: 20110219
  Serious: No
  Sender: FDA-Public Use
  Company Number: US-WYE-H10330609

PATIENT
  Sex: Female
  Weight: 63.56 kg

DRUGS (8)
  1. PRISTIQ [Suspect]
     Indication: BIPOLAR DISORDER
     Route: 048
     Dates: start: 20090624
  2. OXYBUTYNIN [Concomitant]
  3. ATIVAN [Concomitant]
  4. COMBIVENT [Concomitant]
  5. FLOVENT [Concomitant]
  6. ZYRTEC [Concomitant]
  7. TRAZODONE HCL [Concomitant]
  8. FLUTICASONE PROPIONATE [Concomitant]

REACTIONS (1)
  - EYE PAIN [None]
